FAERS Safety Report 8204404-0 (Version None)
Quarter: 2012Q1

REPORT INFORMATION
  Report Type: 
  Country: None (occurrence: None)
  Receive Date: 20120313
  Receipt Date: 20120313
  Transmission Date: 20120608
  Serious: Yes (Disabling)
  Sender: FDA-Public Use
  Company Number: None

PATIENT
  Sex: Male
  Weight: 90 kg

DRUGS (2)
  1. HEPARIN [Suspect]
     Indication: ANTICOAGULANT THERAPY
     Dosage: SEE CASE REPORT
     Dates: start: 20120302, end: 20120302
  2. HEPARIN [Suspect]
     Indication: CORONARY ARTERY BYPASS
     Dosage: SEE CASE REPORT
     Dates: start: 20120302, end: 20120302

REACTIONS (1)
  - DRUG INEFFECTIVE [None]
